FAERS Safety Report 7735934-3 (Version None)
Quarter: 2011Q3

REPORT INFORMATION
  Report Type: 
  Country: None (occurrence: None)
  Receive Date: 20110817
  Receipt Date: 20110207
  Transmission Date: 20111222
  Serious: Yes (Life-Threatening, Hospitalization, Other)
  Sender: FDA-Public Use
  Company Number: 20119950

PATIENT
  Age: 16 Year
  Sex: Female

DRUGS (1)
  1. LIORESAL [Suspect]
     Indication: MUSCLE SPASTICITY
     Dosage: MCG, DAILY, INTRATHECAL
     Route: 037

REACTIONS (5)
  - RESPIRATORY DEPRESSION [None]
  - DELAYED RECOVERY FROM ANAESTHESIA [None]
  - SOMNOLENCE [None]
  - HYPOTONIA [None]
  - MUSCLE SPASTICITY [None]
